FAERS Safety Report 12742086 (Version 1)
Quarter: 2016Q3

REPORT INFORMATION
  Report Type: Spontaneous
  Country: US (occurrence: US)
  Receive Date: 20160914
  Receipt Date: 20160914
  Transmission Date: 20161109
  Serious: No
  Sender: FDA-Public Use
  Company Number: US-BAYER-2016-178634

PATIENT
  Age: 85 Year
  Sex: Female
  Weight: 56.24 kg

DRUGS (8)
  1. VITAMIN D3 [Concomitant]
     Active Substance: CHOLECALCIFEROL
  2. ALEVE [Suspect]
     Active Substance: NAPROXEN SODIUM
     Indication: PAIN
     Dosage: 3 DF, QD
     Route: 048
     Dates: start: 201510
  3. COLESTIPOL [Concomitant]
     Active Substance: COLESTIPOL
  4. ALEVE [Suspect]
     Active Substance: NAPROXEN SODIUM
     Indication: PAIN
     Dosage: 4 DF, QD
     Route: 048
  5. LOSARTAN. [Concomitant]
     Active Substance: LOSARTAN
  6. VITAMIN C [Concomitant]
     Active Substance: ASCORBIC ACID
  7. ECOTRIN [Concomitant]
     Active Substance: ASPIRIN
     Dosage: 1 DF, QD
  8. SERTRALINE [Concomitant]
     Active Substance: SERTRALINE HYDROCHLORIDE

REACTIONS (1)
  - Product use issue [None]
